FAERS Safety Report 5363779-0 (Version None)
Quarter: 2007Q2

REPORT INFORMATION
  Report Type: 
  Country: None (occurrence: None)
  Receive Date: 20070620
  Receipt Date: 20070608
  Transmission Date: 20071010
  Serious: Yes (Hospitalization)
  Sender: FDA-Public Use
  Company Number: FR-GILEAD-2007-0012410

PATIENT
  Age: 46 Year
  Sex: Male
  Weight: 82 kg

DRUGS (6)
  1. VIREAD [Suspect]
     Indication: HIV INFECTION
     Route: 048
     Dates: start: 20070426
  2. NORVIR [Suspect]
     Indication: HIV INFECTION
     Route: 048
     Dates: start: 20070426
  3. EPIVIR [Suspect]
     Indication: HIV INFECTION
     Route: 048
     Dates: start: 20070426
  4. REYATAZ [Suspect]
     Indication: HIV INFECTION
     Route: 048
     Dates: start: 20070426
  5. BACTRIM [Suspect]
     Indication: HIV INFECTION
     Route: 048
  6. BUPRENORPHINE CHLORHYDRATE [Suspect]
     Route: 042
     Dates: end: 20070424

REACTIONS (2)
  - OEDEMA PERIPHERAL [None]
  - SKIN ULCER [None]
